FAERS Safety Report 21400585 (Version 1)
Quarter: 2022Q4

REPORT INFORMATION
  Report Type: Spontaneous
  Country: US (occurrence: US)
  Receive Date: 20221003
  Receipt Date: 20221003
  Transmission Date: 20230112
  Serious: No
  Sender: FDA-Public Use
  Company Number: US-AIMMUNE THERAPEUTICS, INC.-2022AIMT02540

PATIENT

DRUGS (22)
  1. ZENPEP [Suspect]
     Active Substance: PANCRELIPASE AMYLASE\PANCRELIPASE LIPASE\PANCRELIPASE PROTEASE
     Indication: Impaired gastric emptying
     Dosage: UNK USP UNIT
     Route: 048
  2. ZENPEP [Suspect]
     Active Substance: PANCRELIPASE AMYLASE\PANCRELIPASE LIPASE\PANCRELIPASE PROTEASE
     Indication: Gastrointestinal disorder
  3. GABAPENTIN [Concomitant]
     Active Substance: GABAPENTIN
     Indication: Migraine
     Dosage: 600 MG, 2X/DAY
  4. LINZESS [Concomitant]
     Active Substance: LINACLOTIDE
     Indication: Dyspepsia
     Dosage: 145 MCG, 1X/DAY
     Route: 048
  5. CYMBALTA [Concomitant]
     Active Substance: DULOXETINE HYDROCHLORIDE
     Indication: Dyspepsia
     Dosage: 60 MG, 1X/DAY
     Route: 048
  6. NORTRIPTYLINE [Concomitant]
     Active Substance: NORTRIPTYLINE
     Indication: Unevaluable therapy
     Dosage: 10 MG, 2X/DAY
     Route: 048
  7. DOMPERIDONE [Concomitant]
     Active Substance: DOMPERIDONE
     Indication: Product used for unknown indication
     Dosage: 10 MG, 2X/DAY
  8. PROMETHAZINE [Concomitant]
     Active Substance: PROMETHAZINE HYDROCHLORIDE
     Indication: Nausea
     Dosage: 25 MG, 2X/DAY
  9. PANTOPRAZOLE [Concomitant]
     Active Substance: PANTOPRAZOLE
     Indication: Gastrooesophageal reflux disease
     Dosage: 40 MG, 1X/DAY
  10. HYOSCYAMINE SULFATE [Concomitant]
     Active Substance: HYOSCYAMINE SULFATE
     Indication: Product used for unknown indication
     Dosage: 0.375 MG, 3X/DAY AS NEEDED
  11. MYRBETRIQ [Concomitant]
     Active Substance: MIRABEGRON
     Indication: Hypertonic bladder
     Dosage: 50 MG, 1X/DAY
  12. AZELASTINE [Concomitant]
     Active Substance: AZELASTINE
     Indication: Hypersensitivity
     Dosage: 137 MCG, 2X/DAY IN EACH NOSTRIL
     Route: 045
  13. RISPERIDONE [Concomitant]
     Active Substance: RISPERIDONE
     Indication: Depression
     Dosage: 2 MG, 1X/DAY
     Route: 048
  14. RISPERIDONE [Concomitant]
     Active Substance: RISPERIDONE
     Indication: Anxiety
  15. RISPERIDONE [Concomitant]
     Active Substance: RISPERIDONE
     Indication: Disturbance in attention
  16. KETOROLAC [Concomitant]
     Active Substance: KETOROLAC TROMETHAMINE
     Indication: Headache
     Dosage: 2-3 TABLETS AS NEEDED
  17. TOPIRAMATE [Concomitant]
     Active Substance: TOPIRAMATE
     Indication: Depression
     Dosage: 100 MG, 2X/DAY
  18. TOPIRAMATE [Concomitant]
     Active Substance: TOPIRAMATE
     Indication: Disturbance in attention
  19. TOPIRAMATE [Concomitant]
     Active Substance: TOPIRAMATE
     Indication: Headache
  20. SYNTHROID [Concomitant]
     Active Substance: LEVOTHYROXINE SODIUM
     Indication: Thyroid disorder
     Dosage: 110 MCG, 1X/DAY
  21. CLONAZEPAM [Concomitant]
     Active Substance: CLONAZEPAM
     Indication: Anxiety
     Dosage: 1 MG, 2X/DAY
  22. LORATADINE [Concomitant]
     Active Substance: LORATADINE
     Indication: Hypersensitivity
     Dosage: 10 MG, 1X/DAY

REACTIONS (1)
  - Off label use [Unknown]
